FAERS Safety Report 23412279 (Version 1)
Quarter: 2024Q1

REPORT INFORMATION
  Report Type: Spontaneous
  Country: US (occurrence: US)
  Receive Date: 20240117
  Receipt Date: 20240117
  Transmission Date: 20240410
  Serious: No
  Sender: FDA-Public Use
  Company Number: US-NOVOPROD-1092715

PATIENT
  Sex: Female

DRUGS (1)
  1. OZEMPIC [Suspect]
     Active Substance: SEMAGLUTIDE
     Indication: Product used for unknown indication
     Dosage: 0.50 MG
     Route: 058
     Dates: start: 20220707

REACTIONS (5)
  - Weight increased [Unknown]
  - Alopecia [Unknown]
  - Urticaria [Unknown]
  - Nausea [Unknown]
  - Diarrhoea [Unknown]
